FAERS Safety Report 16976841 (Version 1)
Quarter: 2019Q4

REPORT INFORMATION
  Report Type: Spontaneous
  Country: FR (occurrence: FR)
  Receive Date: 20191030
  Receipt Date: 20191030
  Transmission Date: 20200122
  Serious: Yes (Hospitalization)
  Sender: FDA-Public Use
  Company Number: FR-009507513-1910FRA014163

PATIENT
  Age: 52 Year
  Sex: Female
  Weight: 69.4 kg

DRUGS (3)
  1. CLAMOXYL [AMOXICILLIN] [Suspect]
     Active Substance: AMOXICILLIN
     Indication: DENTAL OPERATION
     Route: 048
     Dates: start: 20190916, end: 20190921
  2. LEVOTHYROX [Concomitant]
     Active Substance: LEVOTHYROXINE
     Indication: HYPOTHYROIDISM
     Dosage: 62.5 ?G IN THE MORNING
     Route: 048
     Dates: start: 2009
  3. CELESTENE (BETAMETHASONE) [Suspect]
     Active Substance: BETAMETHASONE
     Indication: DENTAL OPERATION
     Dosage: 2-0-0
     Route: 048
     Dates: start: 20190917, end: 20190922

REACTIONS (1)
  - Pancreatitis acute [Recovering/Resolving]

NARRATIVE: CASE EVENT DATE: 20190921
